FAERS Safety Report 8062246-3 (Version None)
Quarter: 2012Q1

REPORT INFORMATION
  Report Type: 
  Country: None (occurrence: None)
  Receive Date: 20120120
  Receipt Date: 20120120
  Transmission Date: 20120608
  Serious: No
  Sender: FDA-Public Use
  Company Number: None

PATIENT
  Age: 13 Year
  Sex: Male

DRUGS (2)
  1. SERTRALINE HYDROCHLORIDE [Suspect]
     Indication: ATTENTION DEFICIT/HYPERACTIVITY DISORDER
     Dosage: 50MG 1 1/2 QD ORAL
     Route: 048
     Dates: start: 20070317, end: 20070330
  2. SERTRALINE HYDROCHLORIDE [Suspect]
     Indication: AUTISM SPECTRUM DISORDER
     Dosage: 50MG 1 1/2 QD ORAL
     Route: 048
     Dates: start: 20070317, end: 20070330

REACTIONS (2)
  - HEADACHE [None]
  - PRODUCT SUBSTITUTION ISSUE [None]
